FAERS Safety Report 24175449 (Version 1)
Quarter: 2024Q3

REPORT INFORMATION
  Report Type: Report from Study
  Country: FR (occurrence: None)
  Receive Date: 20240805
  Receipt Date: 20240805
  Transmission Date: 20241017
  Serious: Yes (Death, Hospitalization, Other)
  Sender: ASTRAZENECA
  Company Number: 2024A141797

PATIENT
  Age: 84 Year
  Sex: Male
  Weight: 82 kg

DRUGS (2)
  1. IMFINZI [Suspect]
     Active Substance: DURVALUMAB
     Indication: HER2 positive biliary tract cancer
     Route: 042
     Dates: start: 20240515, end: 20240515
  2. GEMCITABINE-CISPLATIN [Concomitant]
     Indication: HER2 positive biliary tract cancer
     Dosage: CISPLATIN 50MG POSOLOGY, GEMCITABINE 2000MG POSOLOGY
     Route: 042
     Dates: start: 20240515, end: 20240515

REACTIONS (5)
  - General physical health deterioration [Fatal]
  - C-reactive protein increased [Fatal]
  - Oedema peripheral [Fatal]
  - Malnutrition [Fatal]
  - Pleural effusion [Fatal]
